FAERS Safety Report 11969694 (Version 1)
Quarter: 2016Q1

REPORT INFORMATION
  Report Type: Not Available
  Country: SE (occurrence: SE)
  Receive Date: 20160128
  Receipt Date: 20160128
  Transmission Date: 20160526
  Serious: Yes (Hospitalization)
  Sender: FDA-Public Use
  Company Number: SE-MUNDIPHARMA DS AND PHARMACOVIGILANCE-GBR-2016-0033556

PATIENT

DRUGS (10)
  1. OXYNORM KAPSEL, HARD [Suspect]
     Active Substance: OXYCODONE HYDROCHLORIDE
     Indication: PRODUCT USED FOR UNKNOWN INDICATION
     Dosage: UNK, PRN
     Route: 048
  2. OMEPRAZOLE. [Concomitant]
     Active Substance: OMEPRAZOLE
  3. OXASCAND [Concomitant]
     Active Substance: OXAZEPAM
  4. VENLAFAXINE [Concomitant]
     Active Substance: VENLAFAXINE HYDROCHLORIDE
  5. ALVEDON [Concomitant]
     Active Substance: ACETAMINOPHEN
     Dosage: UNK, PRN
  6. ADALAT [Concomitant]
     Active Substance: NIFEDIPINE
  7. ENALAPRIL [Concomitant]
     Active Substance: ENALAPRIL
  8. NORSPAN [Suspect]
     Active Substance: BUPRENORPHINE
     Indication: PAIN
     Dosage: 20 MCG, Q1H
     Route: 062
  9. GABAPENTIN. [Concomitant]
     Active Substance: GABAPENTIN
  10. MOVICOL [Concomitant]
     Active Substance: POLYETHYLENE GLYCOL 3350\POTASSIUM CHLORIDE\SODIUM BICARBONATE\SODIUM CHLORIDE

REACTIONS (5)
  - Abdominal pain [Recovered/Resolved]
  - Constipation [Recovered/Resolved]
  - Hypotension [Unknown]
  - Vomiting [Recovered/Resolved]
  - Dehydration [Unknown]

NARRATIVE: CASE EVENT DATE: 20151212
